FAERS Safety Report 19898124 (Version 1)
Quarter: 2021Q3

REPORT INFORMATION
  Report Type: Report from Study
  Country: DE (occurrence: DE)
  Receive Date: 20210929
  Receipt Date: 20210929
  Transmission Date: 20211014
  Serious: Yes (Hospitalization, Other)
  Sender: FDA-Public Use
  Company Number: DE-MYLANLABS-2021M1066645

PATIENT
  Age: 55 Year
  Sex: Male
  Weight: 69 kg

DRUGS (90)
  1. DOXORUBICIN [Suspect]
     Active Substance: DOXORUBICIN
     Dosage: 93 MG, UNK (INFUSION RATE 8.3 ML/MIN FROM 12:00 TO 12:30)
     Route: 041
     Dates: start: 20171113, end: 20171113
  2. VINCRISTINE [Suspect]
     Active Substance: VINCRISTINE
     Indication: DIFFUSE LARGE B-CELL LYMPHOMA
     Dosage: 2 MG, UNK (INFUSION RATE 2 ML/MIN FROM 07:30 TO 07:35)
     Route: 041
     Dates: start: 20180109, end: 20180109
  3. VINCRISTINE [Suspect]
     Active Substance: VINCRISTINE
     Dosage: 2 MG, UNK (INFUSION RATE 2 ML/MIN FROM 07:30 TO 07:35)
     Route: 041
     Dates: start: 20180130, end: 20180130
  4. VINCRISTINE [Suspect]
     Active Substance: VINCRISTINE
     Dosage: 2 MG, UNK
     Route: 042
     Dates: start: 20171102, end: 20171102
  5. RIXATHON [Suspect]
     Active Substance: RITUXIMAB
     Dosage: 700 MG, UNK (INFUSION DATE 2.08 ML/MIN FROM 07:30 TO 11:30)
     Route: 042
     Dates: start: 20180108, end: 20180108
  6. CYCLOPHOSPHAMIDE. [Suspect]
     Active Substance: CYCLOPHOSPHAMIDE
     Dosage: 400 MG, UNK (INFUSION RATE 2.08 ML/MIN FROM 07:35 TO 11:35)
     Route: 041
     Dates: start: 20180109, end: 20180109
  7. PREDNISOLUT                        /00016203/ [Concomitant]
     Dosage: 100 MG, UNK
     Route: 042
     Dates: start: 20171218, end: 20171218
  8. TAVEGIL                            /00137201/ [Concomitant]
     Active Substance: CLEMASTINE FUMARATE
     Dosage: UNK
     Route: 042
     Dates: start: 20171109, end: 20171109
  9. AMPHO?MORONAL [Concomitant]
     Active Substance: AMPHOTERICIN B
     Indication: PROPHYLAXIS
     Dosage: UNK UNK, BID
     Route: 048
     Dates: start: 20171218, end: 20171224
  10. MESNA. [Concomitant]
     Active Substance: MESNA
     Dosage: 2800 MG, UNK
     Route: 042
     Dates: start: 20180109, end: 20180109
  11. MESNA. [Concomitant]
     Active Substance: MESNA
     Dosage: 2800 MG, UNK
     Route: 042
     Dates: start: 20171219, end: 20171219
  12. NEULASTA [Concomitant]
     Active Substance: PEGFILGRASTIM
     Dosage: 6 MG, UNK
     Route: 058
     Dates: start: 20180222, end: 20180222
  13. CYCLOPHOSPHAMIDE. [Suspect]
     Active Substance: CYCLOPHOSPHAMIDE
     Indication: DIFFUSE LARGE B-CELL LYMPHOMA
     Dosage: 1400 MG, UNK (INFUSION RATE 2.1ML/MIN FROM 08:00 TO 12:00)
     Route: 041
     Dates: start: 20171113, end: 20171113
  14. PREDNISOLUT                        /00016203/ [Concomitant]
     Dosage: 100 MG, UNK
     Route: 042
     Dates: start: 20180219, end: 20180219
  15. AMPHO?MORONAL [Concomitant]
     Active Substance: AMPHOTERICIN B
     Dosage: UNK
     Route: 048
     Dates: start: 20171112, end: 20171118
  16. PARACETAMOL [Concomitant]
     Active Substance: ACETAMINOPHEN
     Dosage: 1 G, UNK
     Route: 048
     Dates: start: 20180108, end: 20180108
  17. PREDNISONE. [Suspect]
     Active Substance: PREDNISONE
     Indication: DIFFUSE LARGE B-CELL LYMPHOMA
     Dosage: 400 MG, UNK
     Route: 048
     Dates: start: 20171219, end: 20171222
  18. PREDNISONE. [Suspect]
     Active Substance: PREDNISONE
     Dosage: 400 MG, UNK
     Route: 048
     Dates: start: 20180109, end: 20180112
  19. PREDNISONE. [Suspect]
     Active Substance: PREDNISONE
     Dosage: 400 MG, UNK
     Route: 048
     Dates: start: 20180130, end: 20180202
  20. PREDNISONE. [Suspect]
     Active Substance: PREDNISONE
     Dosage: 400 MG, UNK
     Route: 048
     Dates: start: 20171128, end: 20171201
  21. PREDNISONE. [Suspect]
     Active Substance: PREDNISONE
     Dosage: 400 MG, UNK
     Route: 048
     Dates: start: 20180220, end: 20180223
  22. VINCRISTINE [Suspect]
     Active Substance: VINCRISTINE
     Dosage: 2 MG, UNK (INFUSION RATE 2 ML/MIN FROM 07:30 TO 07:35)
     Route: 041
     Dates: start: 20171128, end: 20171128
  23. RIXATHON [Suspect]
     Active Substance: RITUXIMAB
     Dosage: 700 MG, UNK (INFUSION RATE 2.08 ML/MIN FROM 07:30 TO 11:30)
     Route: 042
     Dates: start: 20171127, end: 20171127
  24. RIXATHON [Suspect]
     Active Substance: RITUXIMAB
     Dosage: 700 MG, UNK (INFUSION DATE 2.08 ML/MIN FROM 07:30 TO 11:30)
     Route: 042
     Dates: start: 20171218, end: 20171218
  25. KEVATRIL [Concomitant]
     Active Substance: GRANISETRON HYDROCHLORIDE
     Dosage: 2 MG, UNK
     Route: 042
     Dates: start: 20180221, end: 20180221
  26. AMPHO?MORONAL [Concomitant]
     Active Substance: AMPHOTERICIN B
     Dosage: UNK UNK, BID (2X1)
     Route: 048
     Dates: start: 20180219, end: 20180226
  27. AMPHO?MORONAL [Concomitant]
     Active Substance: AMPHOTERICIN B
     Dosage: UNK
     Route: 048
     Dates: start: 20180129, end: 20180204
  28. RANITIDIN [Concomitant]
     Active Substance: RANITIDINE HYDROCHLORIDE
     Indication: PROPHYLAXIS
     Dosage: UNK
     Route: 042
     Dates: start: 20180219, end: 20180219
  29. RANITIDIN [Concomitant]
     Active Substance: RANITIDINE HYDROCHLORIDE
     Dosage: UNK
     Route: 042
     Dates: start: 20171109, end: 20171109
  30. NEULASTA [Concomitant]
     Active Substance: PEGFILGRASTIM
     Dosage: 6 MG, UNK
     Route: 058
     Dates: start: 20171115, end: 20171115
  31. NEULASTA [Concomitant]
     Active Substance: PEGFILGRASTIM
     Dosage: 6 MG, UNK
     Route: 058
     Dates: start: 20180201, end: 20180201
  32. PARACETAMOL [Concomitant]
     Active Substance: ACETAMINOPHEN
     Indication: PROPHYLAXIS
     Dosage: 1 G, UNK
     Route: 048
     Dates: start: 20171127, end: 20171127
  33. PARACETAMOL [Concomitant]
     Active Substance: ACETAMINOPHEN
     Dosage: 1 G, UNK
     Route: 048
     Dates: start: 20171109, end: 20171109
  34. PARACETAMOL [Concomitant]
     Active Substance: ACETAMINOPHEN
     Dosage: 1 G, UNK
     Route: 048
     Dates: start: 20180129, end: 20180129
  35. DOXORUBICIN [Suspect]
     Active Substance: DOXORUBICIN
     Indication: DIFFUSE LARGE B-CELL LYMPHOMA
     Dosage: 3 MG, UNK (INFUSION RATE 8.33 ML/MIN FROM 11:35 TO 12:05)
     Route: 041
     Dates: start: 20180109, end: 20180109
  36. DOXORUBICIN [Suspect]
     Active Substance: DOXORUBICIN
     Dosage: 93 MG, UNK (INFUSION RATE 8.33 ML/MIN FROM 11:35 TO 12:05)
     Route: 041
     Dates: start: 20171219, end: 20171219
  37. DOXORUBICIN [Suspect]
     Active Substance: DOXORUBICIN
     Dosage: 93 MG, UNK (INFUSION RATE 8.33 ML/MIN FROM 11:35 TO 12:05)
     Route: 041
     Dates: start: 20180220, end: 20180220
  38. PREDNISONE. [Suspect]
     Active Substance: PREDNISONE
     Dosage: 400 MG, UNK
     Route: 048
     Dates: start: 20171113, end: 20171116
  39. RIXATHON [Suspect]
     Active Substance: RITUXIMAB
     Dosage: 700 MG, UNK (INFUSION DATE 2.08 ML/MIN FROM 07:30 TO 11:30)
     Route: 041
     Dates: start: 20180219
  40. CYCLOPHOSPHAMIDE. [Suspect]
     Active Substance: CYCLOPHOSPHAMIDE
     Dosage: 1400 MG, UNK (INFUSION RATE 2.08 ML/MIN FROM 07:35 TO 11:35)
     Route: 041
     Dates: start: 20171128, end: 20171128
  41. PREDNISOLUT                        /00016203/ [Concomitant]
     Dosage: 100 MG, UNK
     Route: 042
     Dates: start: 20180129, end: 20180129
  42. PREDNISOLUT                        /00016203/ [Concomitant]
     Dosage: 100 MG, UNK
     Route: 048
     Dates: start: 20171103, end: 20171106
  43. KEVATRIL [Concomitant]
     Active Substance: GRANISETRON HYDROCHLORIDE
     Dosage: 2 MG, UNK
     Route: 042
     Dates: start: 20171129, end: 20171129
  44. AMPHO?MORONAL [Concomitant]
     Active Substance: AMPHOTERICIN B
     Dosage: UNK, BID (2X1)
     Route: 048
     Dates: start: 20180108, end: 20180114
  45. NEULASTA [Concomitant]
     Active Substance: PEGFILGRASTIM
     Dosage: 6 MG, UNK
     Route: 058
     Dates: start: 20180111, end: 20180111
  46. VINCRISTINE [Suspect]
     Active Substance: VINCRISTINE
     Dosage: 2 MG, UNK (INFUSION RATE 2 ML/MIN FROM 07:30 TO 07:35)
     Route: 041
     Dates: start: 20180220, end: 20180220
  47. RIXATHON [Suspect]
     Active Substance: RITUXIMAB
     Dosage: 700 MG, UNK (INFUSION RATE 1.7 ML/MIN FROM 07:30 TO 12:30)
     Route: 042
     Dates: start: 20171109, end: 20171109
  48. CYCLOPHOSPHAMIDE. [Suspect]
     Active Substance: CYCLOPHOSPHAMIDE
     Dosage: 400 MG, UNK (INFUSION RATE 2.08 ML/MIN FROM 07:35 TO 11:35)
     Route: 041
     Dates: start: 20180130, end: 20180130
  49. PREDNISOLUT                        /00016203/ [Concomitant]
     Indication: PROPHYLAXIS
     Dosage: 100 MG, UNK
     Route: 042
     Dates: start: 20171127, end: 20171127
  50. TAVEGIL                            /00137201/ [Concomitant]
     Active Substance: CLEMASTINE FUMARATE
     Indication: PROPHYLAXIS
     Dosage: UNK
     Route: 042
     Dates: start: 20171127, end: 20171127
  51. MESNA. [Concomitant]
     Active Substance: MESNA
     Indication: PROPHYLAXIS
     Dosage: 2800 MG, UNK
     Route: 042
     Dates: start: 20180130, end: 20180130
  52. MESNA. [Concomitant]
     Active Substance: MESNA
     Dosage: 2800 UNK, UNK
     Route: 042
     Dates: start: 20171128, end: 20171128
  53. MESNA. [Concomitant]
     Active Substance: MESNA
     Dosage: 2800 MG, UNK
     Route: 042
     Dates: start: 20171113, end: 20171113
  54. UROMITEXAN [Concomitant]
     Active Substance: MESNA
     Indication: PROPHYLAXIS
     Dosage: 400 MG, UNK
     Route: 048
     Dates: start: 20180220, end: 20180220
  55. UROMITEXAN [Concomitant]
     Active Substance: MESNA
     Dosage: 400 MG, UNK
     Route: 048
     Dates: start: 20180130, end: 20180130
  56. RANITIDIN [Concomitant]
     Active Substance: RANITIDINE HYDROCHLORIDE
     Dosage: UNK
     Route: 042
     Dates: start: 20180129, end: 20180129
  57. PANTOZOL [Concomitant]
     Active Substance: PANTOPRAZOLE SODIUM
     Indication: PROPHYLAXIS
     Dosage: 40 MG, UNK
     Route: 048
     Dates: start: 20171112
  58. PARACETAMOL [Concomitant]
     Active Substance: ACETAMINOPHEN
     Dosage: 1 G, UNK
     Route: 048
     Dates: start: 20180219, end: 20180219
  59. DOXORUBICIN [Suspect]
     Active Substance: DOXORUBICIN
     Dosage: 93 MG, UNK (INFUSION RATE 8.33 ML/MIN FROM 11:35 TO 12:05)
     Route: 041
     Dates: start: 20171128, end: 20171128
  60. PREDNISOLUT                        /00016203/ [Concomitant]
     Dosage: 100 MG, UNK
     Route: 042
     Dates: start: 20180108, end: 20180108
  61. TAVEGIL                            /00137201/ [Concomitant]
     Active Substance: CLEMASTINE FUMARATE
     Dosage: UNK
     Route: 042
     Dates: start: 20180108, end: 20180108
  62. TAVEGIL                            /00137201/ [Concomitant]
     Active Substance: CLEMASTINE FUMARATE
     Dosage: UNK
     Route: 042
     Dates: start: 20180219, end: 20180219
  63. KEVATRIL [Concomitant]
     Active Substance: GRANISETRON HYDROCHLORIDE
     Dosage: 1 MG, UNK
     Route: 042
     Dates: start: 20171114, end: 20171114
  64. KEVATRIL [Concomitant]
     Active Substance: GRANISETRON HYDROCHLORIDE
     Dosage: 1 MG, UNK
     Route: 042
     Dates: start: 20171113, end: 20171113
  65. AMPHO?MORONAL [Concomitant]
     Active Substance: AMPHOTERICIN B
     Dosage: UNK UNK, BID
     Route: 048
     Dates: start: 20171127, end: 20171203
  66. UROMITEXAN [Concomitant]
     Active Substance: MESNA
     Dosage: 400 MG, UNK
     Route: 048
     Dates: start: 20180109, end: 20180109
  67. RANITIDIN [Concomitant]
     Active Substance: RANITIDINE HYDROCHLORIDE
     Dosage: UNK
     Route: 042
     Dates: start: 20171218, end: 20171218
  68. NEULASTA [Concomitant]
     Active Substance: PEGFILGRASTIM
     Indication: PROPHYLAXIS
     Dosage: 6 MG, UNK
     Route: 058
     Dates: start: 20171130, end: 20171130
  69. NEULASTA [Concomitant]
     Active Substance: PEGFILGRASTIM
     Dosage: 6 MG, UNK
     Route: 058
     Dates: start: 20171221, end: 20171221
  70. TAGAMET [Concomitant]
     Active Substance: CIMETIDINE
     Indication: PROPHYLAXIS
     Dosage: UNK
     Route: 048
     Dates: start: 20171127, end: 20171127
  71. CYCLOPHOSPHAMIDE. [Suspect]
     Active Substance: CYCLOPHOSPHAMIDE
     Dosage: 400 MG, UNK (INFUSION RATE 2.08 ML/MIN FROM 07:35 TO 11:35)
     Route: 041
     Dates: start: 20180220, end: 20180220
  72. PREDNISOLUT                        /00016203/ [Concomitant]
     Dosage: 100 MG, UNK
     Route: 042
     Dates: start: 20171109, end: 20171109
  73. TAVEGIL                            /00137201/ [Concomitant]
     Active Substance: CLEMASTINE FUMARATE
     Dosage: UNK
     Route: 042
     Dates: start: 20180129, end: 20180129
  74. KEVATRIL [Concomitant]
     Active Substance: GRANISETRON HYDROCHLORIDE
     Indication: PROPHYLAXIS
     Dosage: 2 MG, UNK
     Route: 042
     Dates: start: 20171128, end: 20171128
  75. KEVATRIL [Concomitant]
     Active Substance: GRANISETRON HYDROCHLORIDE
     Dosage: 2 MG, UNK
     Route: 042
     Dates: start: 20171219, end: 20171219
  76. KEVATRIL [Concomitant]
     Active Substance: GRANISETRON HYDROCHLORIDE
     Dosage: 2 MG, UNK
     Route: 042
     Dates: start: 20180220, end: 20180220
  77. KEVATRIL [Concomitant]
     Active Substance: GRANISETRON HYDROCHLORIDE
     Dosage: 2 MG, UNK
     Route: 042
     Dates: start: 20171220, end: 20171220
  78. RANITIDIN [Concomitant]
     Active Substance: RANITIDINE HYDROCHLORIDE
     Dosage: UNK
     Route: 042
     Dates: start: 20180108, end: 20180108
  79. DOXORUBICIN [Suspect]
     Active Substance: DOXORUBICIN
     Dosage: 92 MG, UNK (INFUSION RATE 8.33 ML/MIN FROM 11:35 TO 12:05)
     Route: 041
     Dates: start: 20180130, end: 20180130
  80. VINCRISTINE [Suspect]
     Active Substance: VINCRISTINE
     Dosage: 2 MG, UNK (INFUSION RATE 2 ML/MIN FROM 07:30 TO 07:35)
     Route: 041
     Dates: start: 20171219, end: 20171219
  81. RIXATHON [Suspect]
     Active Substance: RITUXIMAB
     Indication: DIFFUSE LARGE B-CELL LYMPHOMA
     Dosage: 700 MG, UNK (INFUSION DATE 2.08 ML/MIN FROM 07:30 TO 11:30)
     Route: 041
     Dates: start: 20180129, end: 20180129
  82. CYCLOPHOSPHAMIDE. [Suspect]
     Active Substance: CYCLOPHOSPHAMIDE
     Dosage: 1400 MG, UNK (INFUSION RATE 2.08 ML/MIN FROM 07:35 TO 11:35)
     Route: 041
     Dates: start: 20171219, end: 20171219
  83. PREDNISOLUT                        /00016203/ [Concomitant]
     Dosage: 100 MG, UNK
     Route: 042
     Dates: start: 20171102, end: 20171102
  84. TAVEGIL                            /00137201/ [Concomitant]
     Active Substance: CLEMASTINE FUMARATE
     Dosage: UNK
     Route: 042
     Dates: start: 20171218, end: 20171218
  85. KEVATRIL [Concomitant]
     Active Substance: GRANISETRON HYDROCHLORIDE
     Dosage: 2 MG, UNK
     Route: 042
     Dates: start: 20180109, end: 20180109
  86. KEVATRIL [Concomitant]
     Active Substance: GRANISETRON HYDROCHLORIDE
     Dosage: 1 MG, UNK
     Route: 042
     Dates: start: 20171102, end: 20171102
  87. KEVATRIL [Concomitant]
     Active Substance: GRANISETRON HYDROCHLORIDE
     Dosage: 2 MG, UNK
     Route: 042
     Dates: start: 20180130, end: 20180130
  88. MESNA. [Concomitant]
     Active Substance: MESNA
     Dosage: 2800 MG, UNK
     Route: 042
     Dates: start: 20180220, end: 20180220
  89. UROMITEXAN [Concomitant]
     Active Substance: MESNA
     Dosage: 400 MG, UNK
     Route: 048
     Dates: start: 20171113, end: 20171113
  90. PARACETAMOL [Concomitant]
     Active Substance: ACETAMINOPHEN
     Dosage: 1 G, UNK
     Route: 048
     Dates: start: 20171218, end: 20171218

REACTIONS (14)
  - Gait disturbance [Unknown]
  - Hypoaesthesia oral [Unknown]
  - Haemoglobin decreased [Unknown]
  - Anxiety [Unknown]
  - Gynaecomastia [Not Recovered/Not Resolved]
  - Fibrin D dimer increased [Unknown]
  - Intervertebral disc protrusion [Not Recovered/Not Resolved]
  - Hypoaesthesia [Unknown]
  - Tension [Unknown]
  - Thalamic infarction [Recovered/Resolved]
  - Fatigue [Unknown]
  - Red blood cell count decreased [Unknown]
  - Depressed mood [Unknown]
  - Decreased appetite [Unknown]

NARRATIVE: CASE EVENT DATE: 20171109
